FAERS Safety Report 22291718 (Version 1)
Quarter: 2023Q2

REPORT INFORMATION
  Report Type: Spontaneous
  Country: US (occurrence: None)
  Receive Date: 20230507
  Receipt Date: 20230507
  Transmission Date: 20230722
  Serious: Yes (Other)
  Sender: FDA-Public Use
  Company Number: None

PATIENT
  Age: 59 Year
  Sex: Female
  Weight: 67.5 kg

DRUGS (1)
  1. PAXLOVID [Suspect]
     Active Substance: NIRMATRELVIR\RITONAVIR
     Indication: COVID-19 treatment
     Dates: start: 20230315, end: 20230320

REACTIONS (14)
  - COVID-19 [None]
  - Dehydration [None]
  - Headache [None]
  - Blood glucose increased [None]
  - Blood pressure increased [None]
  - Taste disorder [None]
  - Malaise [None]
  - Fatigue [None]
  - Asthenia [None]
  - Fatigue [None]
  - Dyspnoea [None]
  - Weight decreased [None]
  - Muscle atrophy [None]
  - Lipoatrophy [None]

NARRATIVE: CASE EVENT DATE: 20230315
